FAERS Safety Report 10456674 (Version 1)
Quarter: 2014Q3

REPORT INFORMATION
  Report Type: Report from Study
  Country: US (occurrence: US)
  Receive Date: 20140916
  Receipt Date: 20140916
  Transmission Date: 20150326
  Serious: No
  Sender: FDA-Public Use
  Company Number: PHEH2014US017379

PATIENT
  Age: 59 Year
  Sex: Female

DRUGS (10)
  1. LANTUS [Concomitant]
     Active Substance: INSULIN GLARGINE
     Dosage: UNK UKN, UNK
  2. TASIGNA [Suspect]
     Active Substance: NILOTINIB
     Indication: NEOPLASM MALIGNANT
     Dosage: 300 MG, BID
     Route: 048
     Dates: start: 20140321
  3. ADVAIR HFA [Concomitant]
     Active Substance: FLUTICASONE PROPIONATE\SALMETEROL XINAFOATE
     Dosage: UNK UKN, UNK
  4. PERCOCET [Concomitant]
     Active Substance: ACETAMINOPHEN\OXYCODONE HYDROCHLORIDE
     Dosage: UNK UKN, UNK
  5. MVI                                /01825701/ [Concomitant]
     Dosage: UNK UKN, UNK
  6. HYDROCHLOROTHIAZIDE. [Concomitant]
     Active Substance: HYDROCHLOROTHIAZIDE
     Dosage: UNK UKN, UNK
  7. LASIX [Concomitant]
     Active Substance: FUROSEMIDE
     Dosage: UNK UKN, UNK
  8. HYDROCODONE [Concomitant]
     Active Substance: HYDROCODONE
     Dosage: UNK UKN, UNK
  9. TRAMADOL [Concomitant]
     Active Substance: TRAMADOL
     Dosage: UNK UKN, UNK
  10. LIDODERM [Concomitant]
     Active Substance: LIDOCAINE
     Dosage: UNK UKN, UNK

REACTIONS (2)
  - Neuralgia [Unknown]
  - Back pain [Unknown]

NARRATIVE: CASE EVENT DATE: 201407
